FAERS Safety Report 7629771-8 (Version None)
Quarter: 2011Q3

REPORT INFORMATION
  Report Type: 
  Country: None (occurrence: None)
  Receive Date: 20110722
  Receipt Date: 20110718
  Transmission Date: 20111222
  Serious: Yes (Hospitalization, Other)
  Sender: FDA-Public Use
  Company Number: US-ROCHE-791582

PATIENT
  Sex: Male

DRUGS (1)
  1. XELODA [Suspect]
     Indication: BREAST CANCER STAGE IV
     Dosage: START DATE:OVER A YEAR
     Route: 048

REACTIONS (2)
  - GRAND MAL CONVULSION [None]
  - TOXICITY TO VARIOUS AGENTS [None]
